FAERS Safety Report 24665190 (Version 7)
Quarter: 2025Q3

REPORT INFORMATION
  Report Type: Report from Study
  Country: JP (occurrence: JP)
  Receive Date: 20241126
  Receipt Date: 20250912
  Transmission Date: 20251021
  Serious: Yes (Other)
  Sender: ABBVIE
  Company Number: JP-ABBVIE-6017662

PATIENT
  Age: 72 Year
  Sex: Male

DRUGS (2)
  1. VYALEV [Suspect]
     Active Substance: FOSCARBIDOPA\FOSLEVODOPA
     Indication: Parkinson^s disease
     Route: 058
     Dates: start: 20241119
  2. VYALEV [Suspect]
     Active Substance: FOSCARBIDOPA\FOSLEVODOPA
     Route: 058
     Dates: start: 20241120

REACTIONS (8)
  - Pneumonia aspiration [Recovering/Resolving]
  - On and off phenomenon [Unknown]
  - Infusion site induration [Unknown]
  - Infusion site reaction [Unknown]
  - Infusion site infection [Unknown]
  - Infusion site discharge [Unknown]
  - Infusion site cellulitis [Recovered/Resolved]
  - Infusion site cellulitis [Recovering/Resolving]

NARRATIVE: CASE EVENT DATE: 20240101
